FAERS Safety Report 16481957 (Version 1)
Quarter: 2019Q2

REPORT INFORMATION
  Report Type: Spontaneous
  Country: US (occurrence: US)
  Receive Date: 20190627
  Receipt Date: 20190627
  Transmission Date: 20190711
  Serious: Yes (Other)
  Sender: FDA-Public Use
  Company Number: US-SA-2019SA169775

PATIENT
  Age: 65 Year
  Sex: Female

DRUGS (26)
  1. ATORVASTATIN CALCIUM. [Concomitant]
     Active Substance: ATORVASTATIN CALCIUM
  2. INSULIN LISPRO [Concomitant]
     Active Substance: INSULIN LISPRO
  3. AMMONIUM ACETATE. [Concomitant]
     Active Substance: AMMONIUM ACETATE
  4. LACTULOSE. [Concomitant]
     Active Substance: LACTULOSE
  5. MYCOSTATIN [Concomitant]
     Active Substance: NYSTATIN
  6. ALENDRONATE [Concomitant]
     Active Substance: ALENDRONATE SODIUM
  7. DEXTROMETHORPHAN [Concomitant]
     Active Substance: DEXTROMETHORPHAN
  8. MAGNESIUM HYDROXIDE. [Concomitant]
     Active Substance: MAGNESIUM HYDROXIDE
  9. CELEXA [CELECOXIB] [Concomitant]
     Active Substance: CELECOXIB
  10. DONEPEZIL. [Concomitant]
     Active Substance: DONEPEZIL
  11. ZOFRAN [Concomitant]
     Active Substance: ONDANSETRON HYDROCHLORIDE
  12. BACLOFEN. [Concomitant]
     Active Substance: BACLOFEN
  13. CARBOXYMETHYLCELLULOSE [Concomitant]
     Active Substance: CARBOXYMETHYLCELLULOSE
  14. CILOXAN [Concomitant]
     Active Substance: CIPROFLOXACIN HYDROCHLORIDE
  15. AUBAGIO [Suspect]
     Active Substance: TERIFLUNOMIDE
     Indication: MULTIPLE SCLEROSIS
     Dosage: 14 MG, QD
     Route: 048
     Dates: start: 20180207
  16. LINZESS [Concomitant]
     Active Substance: LINACLOTIDE
  17. VESICARE [Concomitant]
     Active Substance: SOLIFENACIN SUCCINATE
  18. ACETAMINOPHEN. [Concomitant]
     Active Substance: ACETAMINOPHEN
  19. HEPARIN [Concomitant]
     Active Substance: HEPARIN SODIUM
  20. KEPPRA [Concomitant]
     Active Substance: LEVETIRACETAM
  21. RESTASIS [Concomitant]
     Active Substance: CYCLOSPORINE
  22. BISACODYL. [Concomitant]
     Active Substance: BISACODYL
  23. VITAMIN D3 [Concomitant]
     Active Substance: CHOLECALCIFEROL
  24. KEFLEX [Concomitant]
     Active Substance: CEPHALEXIN
  25. VITAMIN B12 [Concomitant]
     Active Substance: CYANOCOBALAMIN
  26. DIPHENOXYLATE [Concomitant]
     Active Substance: DIPHENOXYLATE

REACTIONS (2)
  - Type 2 diabetes mellitus [Unknown]
  - Hip fracture [Unknown]

NARRATIVE: CASE EVENT DATE: 20190617
